FAERS Safety Report 7113891-0 (Version None)
Quarter: 2010Q4

REPORT INFORMATION
  Report Type: 
  Country: None (occurrence: None)
  Receive Date: 20101119
  Receipt Date: 20101117
  Transmission Date: 20110411
  Serious: Yes (Other)
  Sender: FDA-Public Use
  Company Number: A0892985A

PATIENT
  Age: 19 Year
  Sex: Male
  Weight: 63 kg

DRUGS (1)
  1. EQUATE NTS 21MG, CLEAR [Suspect]
     Indication: SMOKING CESSATION THERAPY
     Route: 062
     Dates: start: 20101116, end: 20101116

REACTIONS (4)
  - CONVULSION [None]
  - DYSKINESIA [None]
  - LOSS OF CONSCIOUSNESS [None]
  - VISION BLURRED [None]
